FAERS Safety Report 12841434 (Version 1)
Quarter: 2016Q4

REPORT INFORMATION
  Report Type: Spontaneous
  Country: US (occurrence: US)
  Receive Date: 20161012
  Receipt Date: 20161012
  Transmission Date: 20170207
  Serious: No
  Sender: FDA-Public Use
  Company Number: US-LUNDBECK-DKLU2019362

PATIENT

DRUGS (1)
  1. SABRIL [Suspect]
     Active Substance: VIGABATRIN
     Indication: CEREBRAL DISORDER
     Route: 065
     Dates: start: 20160708

REACTIONS (1)
  - Wrong technique in product usage process [Unknown]
